FAERS Safety Report 8280432-4 (Version None)
Quarter: 2012Q2

REPORT INFORMATION
  Report Type: 
  Country: None (occurrence: None)
  Receive Date: 20120412
  Receipt Date: 20111024
  Transmission Date: 20120825
  Serious: Yes (Hospitalization)
  Sender: FDA-Public Use
  Company Number: US-ASTRAZENECA-2011SE18912

PATIENT
  Age: 84 Year
  Sex: Female

DRUGS (2)
  1. NEXIUM [Suspect]
     Route: 048
  2. PAIN RELIEVER [Suspect]
     Route: 065

REACTIONS (3)
  - ADVERSE EVENT [None]
  - MALAISE [None]
  - HIATUS HERNIA [None]
